FAERS Safety Report 25684433 (Version 3)
Quarter: 2025Q3

REPORT INFORMATION
  Report Type: Report from Study
  Country: US (occurrence: US)
  Receive Date: 20250815
  Receipt Date: 20250918
  Transmission Date: 20251021
  Serious: Yes (Other)
  Sender: SUNOVION
  Company Number: US-SMPA-2025SPA010314

PATIENT
  Age: 56 Year
  Sex: Male

DRUGS (11)
  1. ORGOVYX [Suspect]
     Active Substance: RELUGOLIX
     Indication: Prostate cancer
     Route: 048
     Dates: start: 20250703, end: 20250703
  2. ORGOVYX [Suspect]
     Active Substance: RELUGOLIX
     Route: 048
  3. NALTREXONE [Concomitant]
     Active Substance: NALTREXONE
  4. FOLIC ACID [Concomitant]
     Active Substance: FOLIC ACID
  5. TYLENOL [Concomitant]
     Active Substance: ACETAMINOPHEN
  6. VITAMIN B12 [Concomitant]
     Active Substance: CYANOCOBALAMIN
  7. FIBER THERAPY (CALCIUM POLYCARBOPHIL) [Concomitant]
     Active Substance: CALCIUM POLYCARBOPHIL
  8. TAMSULOSIN [Concomitant]
     Active Substance: TAMSULOSIN
  9. LISINOPRIL [Concomitant]
     Active Substance: LISINOPRIL
  10. OXYCODONE [Concomitant]
     Active Substance: OXYCODONE
  11. GABAPENTIN [Concomitant]
     Active Substance: GABAPENTIN

REACTIONS (8)
  - Transurethral prostatectomy [Unknown]
  - Dysuria [Unknown]
  - Food craving [Unknown]
  - Weight decreased [Unknown]
  - Irritability [Unknown]
  - Myalgia [Unknown]
  - Fatigue [Unknown]
  - Product dose omission issue [Recovered/Resolved]

NARRATIVE: CASE EVENT DATE: 20250701
